FAERS Safety Report 9214008 (Version 1)
Quarter: 2013Q2

REPORT INFORMATION
  Report Type: Spontaneous
  Country: US (occurrence: None)
  Receive Date: 20130404
  Receipt Date: 20130404
  Transmission Date: 20140414
  Serious: Yes (Other)
  Sender: FDA-Public Use
  Company Number: None

PATIENT
  Age: 61 Year
  Sex: Male

DRUGS (7)
  1. LETAIRIS [Suspect]
     Indication: PULMONARY HYPERTENSION
     Route: 048
     Dates: start: 201302
  2. ATORVASTATIN [Concomitant]
  3. AMITRIPTYLINE [Concomitant]
  4. LEVOTHYROXINE [Concomitant]
  5. PROBENECID [Concomitant]
  6. WARFARIN [Concomitant]
  7. SILDENAFIL [Concomitant]

REACTIONS (2)
  - Epistaxis [None]
  - Thrombocytopenia [None]
